FAERS Safety Report 16943547 (Version 2)
Quarter: 2020Q2

REPORT INFORMATION
  Report Type: Spontaneous
  Country: US (occurrence: US)
  Receive Date: 20191022
  Receipt Date: 20200415
  Transmission Date: 20200713
  Serious: No
  Sender: FDA-Public Use
  Company Number: US-AMGEN INC.-USASP2019169542

PATIENT

DRUGS (1)
  1. AIMOVIG [Suspect]
     Active Substance: ERENUMAB-AOOE
     Indication: PRODUCT USED FOR UNKNOWN INDICATION
     Dosage: UNK
     Route: 065
     Dates: start: 2018, end: 2019

REACTIONS (8)
  - Weight increased [Recovering/Resolving]
  - Anxiety [Recovering/Resolving]
  - Constipation [Recovering/Resolving]
  - Adverse event [Unknown]
  - Arthralgia [Recovering/Resolving]
  - Migraine [Not Recovered/Not Resolved]
  - Depression [Recovering/Resolving]
  - Abdominal distension [Recovering/Resolving]
